FAERS Safety Report 5590038-3 (Version None)
Quarter: 2007Q4

REPORT INFORMATION
  Report Type: 
  Country: None (occurrence: None)
  Receive Date: 20071212
  Receipt Date: 20070627
  Transmission Date: 20080405
  Serious: Yes (Other)
  Sender: FDA-Public Use
  Company Number: USA-2007-0028072

PATIENT
  Sex: Female

DRUGS (3)
  1. OXYCONTIN [Suspect]
     Indication: DRUG ABUSE
  2. PERCOCET [Suspect]
     Indication: DRUG ABUSER
     Dosage: SEE TEXT, ORAL
     Route: 048
  3. FENTANYL [Suspect]
     Indication: DRUG ABUSER
     Dosage: DAILY

REACTIONS (2)
  - DRUG DEPENDENCE [None]
  - SUBSTANCE ABUSE [None]
